FAERS Safety Report 8579418-1 (Version None)
Quarter: 2012Q3

REPORT INFORMATION
  Report Type: 
  Country: None (occurrence: None)
  Receive Date: 20120808
  Receipt Date: 20120725
  Transmission Date: 20120928
  Serious: Yes (Death)
  Sender: FDA-Public Use
  Company Number: JP-ROCHE-724316

PATIENT
  Sex: Female
  Weight: 52 kg

DRUGS (20)
  1. FLUOROURACIL [Concomitant]
     Indication: BREAST CANCER
     Route: 065
     Dates: start: 20100205, end: 20100409
  2. EPIRUBICIN HYDROCHLORIDE [Concomitant]
     Indication: BREAST CANCER
     Route: 042
     Dates: start: 20100205, end: 20100409
  3. BETAMETHASONE [Concomitant]
     Route: 048
     Dates: start: 20100528, end: 20100601
  4. SULPIRIDE [Concomitant]
     Indication: PROPHYLAXIS OF NAUSEA AND VOMITING
     Route: 048
     Dates: start: 20100507, end: 20100511
  5. SULPIRIDE [Concomitant]
     Route: 048
     Dates: start: 20100709, end: 20100713
  6. HERCEPTIN [Suspect]
     Dosage: DOSE LOWERED
     Route: 041
     Dates: start: 20100709, end: 20100709
  7. CYCLOPHOSPHAMIDE [Suspect]
     Indication: BREAST CANCER
     Dosage: DOSEAGE IS UNCERTAIN
     Route: 042
     Dates: start: 20100205, end: 20100409
  8. PROCHLORPERAZINE [Concomitant]
     Route: 048
     Dates: start: 20100528, end: 20100601
  9. BETAMETHASONE [Concomitant]
     Indication: PROPHYLAXIS OF NAUSEA AND VOMITING
     Dosage: FORM: PERIORAL AGENT
     Route: 048
     Dates: start: 20100507, end: 20100511
  10. TAXOTERE [Suspect]
     Indication: BREAST CANCER
     Dosage: DOSE IS UNCERTAIN
     Route: 041
     Dates: start: 20100507, end: 20100709
  11. PROCHLORPERAZINE [Concomitant]
     Route: 048
     Dates: start: 20100618, end: 20100622
  12. SULPIRIDE [Concomitant]
     Route: 048
     Dates: start: 20100618, end: 20100622
  13. HERCEPTIN [Suspect]
     Route: 041
     Dates: start: 20100528, end: 20100528
  14. BETAMETHASONE [Concomitant]
     Route: 048
     Dates: start: 20100618, end: 20100622
  15. SULPIRIDE [Concomitant]
     Route: 048
     Dates: start: 20100528, end: 20100601
  16. HERCEPTIN [Suspect]
     Route: 041
     Dates: start: 20100618, end: 20100618
  17. PROCHLORPERAZINE [Concomitant]
     Indication: PROPHYLAXIS OF NAUSEA AND VOMITING
     Route: 048
     Dates: start: 20100507, end: 20100511
  18. BETAMETHASONE [Concomitant]
     Route: 048
     Dates: start: 20100709, end: 20100713
  19. HERCEPTIN [Suspect]
     Indication: BREAST CANCER
     Route: 041
     Dates: start: 20100507, end: 20100507
  20. PROCHLORPERAZINE [Concomitant]
     Route: 048
     Dates: start: 20100709, end: 20100713

REACTIONS (4)
  - INTERSTITIAL LUNG DISEASE [None]
  - DISSEMINATED INTRAVASCULAR COAGULATION [None]
  - CARDIAC FAILURE [None]
  - CEREBRAL INFARCTION [None]
